FAERS Safety Report 25832373 (Version 3)
Quarter: 2025Q4

REPORT INFORMATION
  Report Type: Spontaneous
  Country: EU (occurrence: EU)
  Receive Date: 20250922
  Receipt Date: 20251016
  Transmission Date: 20260117
  Serious: Yes (Hospitalization, Other)
  Sender: TEVA
  Company Number: EU-EMB-M202405779-1

PATIENT
  Sex: Female
  Weight: 2.6 kg

DRUGS (11)
  1. OMEPRAZOLE [Suspect]
     Active Substance: OMEPRAZOLE
     Indication: Gastrooesophageal reflux disease
     Dosage: TIME INTERVAL: AS NECESSARY: EVERY 2 TO 3 DAYS
     Route: 064
  2. ENOXAPARIN SODIUM [Concomitant]
     Active Substance: ENOXAPARIN SODIUM
     Indication: Coagulopathy
     Route: 064
  3. HYDROCORTISONE [Suspect]
     Active Substance: HYDROCORTISONE
     Indication: Adrenal insufficiency
     Dosage: 20-30 MG/D
     Route: 064
     Dates: start: 202310, end: 202407
  4. FOSTER [Suspect]
     Active Substance: BECLOMETHASONE\FORMOTEROL
     Indication: Asthma
     Dosage: 400/12 ?G, PARENT ROA: INHALATION USE
     Route: 064
     Dates: start: 202406, end: 202407
  5. TETANUS TOXOID, REDUCED DIPHTHERIA TOXOID AND ACELLULAR PERTUSSIS VACC [Suspect]
     Active Substance: TETANUS TOXOID, REDUCED DIPHTHERIA TOXOID AND ACELLULAR PERTUSSIS VACCINE ADSORBED, TDAP
     Indication: Immunisation
     Route: 064
     Dates: start: 202405, end: 202405
  6. Calcet [Concomitant]
     Indication: Osteopenia
     Route: 064
     Dates: start: 202310, end: 202407
  7. CHOLECALCIFEROL [Concomitant]
     Active Substance: CHOLECALCIFEROL
     Indication: Osteopenia
     Route: 064
     Dates: start: 202310, end: 202407
  8. DESLORATADINE [Suspect]
     Active Substance: DESLORATADINE
     Indication: Hypersensitivity
     Route: 064
     Dates: start: 202310, end: 202407
  9. Comirnaty [Concomitant]
     Indication: COVID-19 immunisation
     Route: 064
     Dates: start: 202311, end: 202311
  10. BECLOMETHASONE DIPROPIONATE\FORMOTEROL FUMARATE\GLYCOPYRROLATE [Suspect]
     Active Substance: BECLOMETHASONE DIPROPIONATE\FORMOTEROL FUMARATE\GLYCOPYRROLATE
     Indication: Asthma
     Dosage: 344/10/18 ?G 2X DAILY, PARENT ROA: INHALATION USE
     Route: 064
     Dates: start: 202310, end: 202406
  11. TEZEPELUMAB [Suspect]
     Active Substance: TEZEPELUMAB
     Indication: Asthma
     Route: 064
     Dates: start: 202310, end: 202407

REACTIONS (3)
  - Small for dates baby [Recovered/Resolved]
  - Neonatal infection [Recovered/Resolved]
  - Foetal exposure during pregnancy [Unknown]

NARRATIVE: CASE EVENT DATE: 20240701
